FAERS Safety Report 6424271-5 (Version None)
Quarter: 2009Q4

REPORT INFORMATION
  Report Type: 
  Country: None (occurrence: None)
  Receive Date: 20091102
  Receipt Date: 20091020
  Transmission Date: 20100525
  Serious: Yes (Hospitalization)
  Sender: FDA-Public Use
  Company Number: CA-WATSON-2009-08981

PATIENT
  Age: 72 Year
  Sex: Male

DRUGS (3)
  1. CARBOPLATIN [Suspect]
     Indication: SMALL CELL CARCINOMA
     Route: 042
  2. ETOPOSIDE [Suspect]
     Indication: SMALL CELL CARCINOMA
     Dosage: 100 MG/M2, DAYS 1 TO 3
     Route: 042
  3. CISPLATIN [Suspect]
     Indication: SMALL CELL CARCINOMA
     Dosage: 80 MG/M2, DAY 1
     Route: 042

REACTIONS (1)
  - INTESTINAL PERFORATION [None]
